FAERS Safety Report 21171779 (Version 1)
Quarter: 2022Q3

REPORT INFORMATION
  Report Type: Spontaneous
  Country: BR (occurrence: BR)
  Receive Date: 20220804
  Receipt Date: 20220804
  Transmission Date: 20221026
  Serious: Yes (Other)
  Sender: FDA-Public Use
  Company Number: BR-PFIZER INC-202201021246

PATIENT
  Age: 91 Year
  Sex: Male

DRUGS (4)
  1. LORAZEPAM [Suspect]
     Active Substance: LORAZEPAM
     Indication: Anxiety
     Dosage: START DATE: MORE THAN 60 YEARS AGO, 2X/DAY
  2. ATORVASTATIN [Concomitant]
     Active Substance: ATORVASTATIN
     Dosage: START DATE: MORE THAN 2 YEARS AGO
  3. ENALAPRIL [Concomitant]
     Active Substance: ENALAPRIL
     Dosage: START DATE: MORE THAN 2 YEARS AGO
  4. ASPIRIN [Concomitant]
     Active Substance: ASPIRIN
     Dosage: START DATE: MORE THAN 2 YEARS AGO

REACTIONS (3)
  - Drug dependence [Not Recovered/Not Resolved]
  - Skin cancer [Not Recovered/Not Resolved]
  - Glaucoma [Unknown]
